FAERS Safety Report 19080570 (Version 4)
Quarter: 2021Q2

REPORT INFORMATION
  Report Type: Spontaneous
  Country: US (occurrence: US)
  Receive Date: 20210331
  Receipt Date: 20210514
  Transmission Date: 20210717
  Serious: Yes (Hospitalization, Other)
  Sender: FDA-Public Use
  Company Number: US-009507513-2103USA008057

PATIENT
  Age: 76 Year
  Sex: Male
  Weight: 76.2 kg

DRUGS (8)
  1. ASPIRIN. [Concomitant]
     Active Substance: ASPIRIN
     Indication: ANTICOAGULANT THERAPY
     Dosage: (LOW DOSE) ONE WITH BRILINTA IN THE MORNING/ 81MG ONCE A DAY BY MOUTH
     Route: 048
  2. INLYTA [Suspect]
     Active Substance: AXITINIB
     Dosage: UNK
     Dates: start: 202103, end: 202104
  3. PRINIVIL [Concomitant]
     Active Substance: LISINOPRIL
     Indication: BLOOD PRESSURE MANAGEMENT
     Dosage: 5MG AS NEEDED BY MOUTH
     Route: 048
  4. KEYTRUDA [Suspect]
     Active Substance: PEMBROLIZUMAB
     Indication: CLEAR CELL RENAL CELL CARCINOMA
     Dosage: UNK
     Dates: start: 2020, end: 2021
  5. BRILINTA [Concomitant]
     Active Substance: TICAGRELOR
     Indication: MYOCARDIAL INFARCTION
     Dosage: 90MG TWICE A DAY BY MOUTH
     Route: 048
     Dates: start: 20201103
  6. ATORVASTATIN [Concomitant]
     Active Substance: ATORVASTATIN
     Indication: BLOOD CHOLESTEROL ABNORMAL
     Dosage: 40MG, ONE TABLET EVERY DAY BY MOUTH
     Route: 048
  7. EZETIMIBE. [Concomitant]
     Active Substance: EZETIMIBE
     Indication: BLOOD CHOLESTEROL ABNORMAL
     Dosage: 10MG ONCE DAY BY MOUTH
     Route: 048
  8. INLYTA [Suspect]
     Active Substance: AXITINIB
     Indication: CLEAR CELL RENAL CELL CARCINOMA
     Dosage: 1 MG 3 PILLS TWICE A DAY (FOR A TOTAL OF 6MG A DAY) BY MOUTH
     Route: 048
     Dates: start: 202101, end: 2021

REACTIONS (6)
  - Hepatic enzyme increased [Unknown]
  - Acute hepatic failure [Recovered/Resolved]
  - Weight decreased [Not Recovered/Not Resolved]
  - Adverse event [Unknown]
  - Sepsis [Unknown]
  - Urinary tract infection [Unknown]

NARRATIVE: CASE EVENT DATE: 20210204
